FAERS Safety Report 10356438 (Version 1)
Quarter: 2014Q3

REPORT INFORMATION
  Report Type: Spontaneous
  Country: US (occurrence: None)
  Receive Date: 20140730
  Receipt Date: 20140730
  Transmission Date: 20150326
  Serious: Yes (Life-Threatening)
  Sender: FDA-Public Use
  Company Number: None

PATIENT
  Age: 45 Year
  Sex: Female
  Weight: 60 kg

DRUGS (1)
  1. INDIGO CARMINE [Suspect]
     Active Substance: INDIGOTINDISULFONATE SODIUM
     Indication: DIAGNOSTIC PROCEDURE
     Dates: start: 20140724

REACTIONS (3)
  - Hypotension [None]
  - Tachycardia [None]
  - Hypoxia [None]

NARRATIVE: CASE EVENT DATE: 20140724
